FAERS Safety Report 8303631-1 (Version None)
Quarter: 2012Q1

REPORT INFORMATION
  Report Type: 
  Country: None (occurrence: None)
  Receive Date: 20120326
  Receipt Date: 20111213
  Transmission Date: 20120608
  Serious: Yes (Other)
  Sender: FDA-Public Use
  Company Number: PHEH2011US03455

PATIENT
  Sex: Female
  Weight: 113.4 kg

DRUGS (13)
  1. LIPITOR [Concomitant]
  2. CARVEDILOL [Concomitant]
  3. ASPIRIN [Concomitant]
  4. TRAZODONE HCL [Concomitant]
  5. ENAPRIL (ENALAPRIL) [Concomitant]
  6. ISOSORB (ISOSORBIDE DINITRATE) [Concomitant]
  7. TASIGNA [Suspect]
     Dosage: 150 MG, BID, ORAL
     Route: 048
  8. DIAZEPAM [Concomitant]
  9. SPIRIVA [Concomitant]
  10. IMDUR [Concomitant]
  11. PLAVIX [Concomitant]
  12. RANEXA [Concomitant]
  13. FLONASE [Concomitant]

REACTIONS (10)
  - DEVICE MALFUNCTION [None]
  - BONE PAIN [None]
  - PHOTOSENSITIVITY REACTION [None]
  - SUNBURN [None]
  - TESTICULAR PAIN [None]
  - ANGINA PECTORIS [None]
  - RED BLOOD CELL COUNT DECREASED [None]
  - MYALGIA [None]
  - ALOPECIA [None]
  - BLOOD PRESSURE DECREASED [None]
